FAERS Safety Report 9326454 (Version 3)
Quarter: 2013Q2

REPORT INFORMATION
  Report Type: Spontaneous
  Country: CH (occurrence: CH)
  Receive Date: 20130604
  Receipt Date: 20130628
  Transmission Date: 20140414
  Serious: Yes (Hospitalization)
  Sender: FDA-Public Use
  Company Number: CH-PFIZER INC-2013167178

PATIENT
  Age: 73 Year
  Sex: Female

DRUGS (8)
  1. PANTOZOL [Suspect]
     Indication: PROPHYLAXIS
     Dosage: 40 MG, 1X/DAY
     Route: 048
     Dates: start: 20130427, end: 20130507
  2. COMPETACT [Suspect]
     Indication: DIABETES MELLITUS
     Dosage: 15/850 MG, 1 DF, AS REQUIRED
     Route: 048
     Dates: end: 20130508
  3. EFEXOR [Concomitant]
     Indication: DEPRESSION
     Dosage: UNK
     Route: 048
  4. BLOPRESS PLUS [Concomitant]
     Route: 048
  5. XANAX [Concomitant]
     Route: 048
  6. SIMVASTATINE [Concomitant]
     Route: 048
  7. SERESTA [Concomitant]
     Route: 048
  8. MARCOUMAR [Concomitant]
     Dosage: UNK
     Route: 048
     Dates: end: 20130508

REACTIONS (8)
  - Renal failure chronic [Recovering/Resolving]
  - Lactic acidosis [Recovered/Resolved]
  - Fall [Recovered/Resolved]
  - Vitamin B12 deficiency [Recovering/Resolving]
  - Diarrhoea [Recovered/Resolved]
  - Blood creatinine increased [Recovering/Resolving]
  - Blood potassium increased [Recovering/Resolving]
  - Vomiting [Recovered/Resolved]
